FAERS Safety Report 9691603 (Version 1)
Quarter: 2013Q4

REPORT INFORMATION
  Report Type: Report from Study
  Country: US (occurrence: US)
  Receive Date: 20131115
  Receipt Date: 20131115
  Transmission Date: 20140711
  Serious: Yes (Hospitalization, Other)
  Sender: FDA-Public Use
  Company Number: US-TAKEDA-2013TUS002238

PATIENT
  Sex: 0

DRUGS (5)
  1. COLCRYS [Suspect]
     Indication: GOUT
     Dosage: 0.6 MG, QD
     Dates: start: 20130318, end: 20130709
  2. COLCRYS [Suspect]
     Dosage: 0.6 MG, BID
  3. ASPIRIN [Concomitant]
  4. THEANINE [Concomitant]
  5. PROMETHAZINE [Concomitant]

REACTIONS (9)
  - Renal failure acute [Recovered/Resolved]
  - Dizziness [Unknown]
  - Feeling jittery [Unknown]
  - Syncope [Unknown]
  - Gastrooesophageal reflux disease [Unknown]
  - Paraesthesia [Unknown]
  - Muscular weakness [Unknown]
  - Diarrhoea [Unknown]
  - Nausea [Unknown]
